FAERS Safety Report 24930178 (Version 1)
Quarter: 2025Q1

REPORT INFORMATION
  Report Type: Report from Study
  Country: US (occurrence: US)
  Receive Date: 20250205
  Receipt Date: 20250205
  Transmission Date: 20250408
  Serious: Yes (Other)
  Sender: MYLAN
  Company Number: US-MYLANLABS-2025M1009572

PATIENT
  Age: 80 Year
  Sex: Female
  Weight: 95.23 kg

DRUGS (5)
  1. ATORVASTATIN [Suspect]
     Active Substance: ATORVASTATIN
     Indication: Hyperlipidaemia
     Route: 065
  2. NIROGACESTAT [Suspect]
     Active Substance: NIROGACESTAT
     Indication: Desmoid tumour
     Dosage: 150 MILLIGRAM, BID
     Route: 048
     Dates: start: 20240112
  3. NIROGACESTAT [Suspect]
     Active Substance: NIROGACESTAT
     Dosage: 150 MILLIGRAM, QD
     Route: 048
  4. NIROGACESTAT [Suspect]
     Active Substance: NIROGACESTAT
     Dosage: 100 MILLIGRAM, BID
     Route: 048
     Dates: start: 20240206
  5. NIROGACESTAT [Suspect]
     Active Substance: NIROGACESTAT
     Dosage: 150 MILLIGRAM, BID
     Route: 048
     Dates: start: 20240608

REACTIONS (22)
  - Squamous cell carcinoma [Recovered/Resolved]
  - Dehydration [Recovered/Resolved]
  - Urinary tract infection [Recovered/Resolved]
  - Hepatic enzyme increased [Recovered/Resolved]
  - Conjunctivitis [Recovered/Resolved with Sequelae]
  - Eye irritation [Recovered/Resolved]
  - Dry eye [Recovered/Resolved]
  - Dry mouth [Recovered/Resolved]
  - Dry skin [Recovered/Resolved]
  - Nasal dryness [Recovered/Resolved]
  - Lacrimation decreased [Recovered/Resolved]
  - Cough [Not Recovered/Not Resolved]
  - Throat irritation [Recovered/Resolved]
  - Mydriasis [Recovered/Resolved]
  - Aspartate aminotransferase increased [Unknown]
  - Skin lesion [Unknown]
  - Diarrhoea [Not Recovered/Not Resolved]
  - Fatigue [Unknown]
  - Joint swelling [Recovered/Resolved]
  - Weight increased [Recovered/Resolved]
  - Vision blurred [Unknown]
  - Chest pain [Unknown]

NARRATIVE: CASE EVENT DATE: 20240122
